FAERS Safety Report 25680566 (Version 1)
Quarter: 2025Q3

REPORT INFORMATION
  Report Type: Report from Study
  Country: US (occurrence: US)
  Receive Date: 20250814
  Receipt Date: 20250814
  Transmission Date: 20251021
  Serious: No
  Sender: SUNOVION
  Company Number: US-SUMITOMO PHARMA SWITZERLAND GMBH-2025SPA007868

PATIENT
  Age: 73 Year
  Sex: Male

DRUGS (13)
  1. ORGOVYX [Suspect]
     Active Substance: RELUGOLIX
     Indication: Prostate cancer
     Route: 048
  2. ORGOVYX [Suspect]
     Active Substance: RELUGOLIX
     Route: 048
  3. ALPRAZOLAM [Concomitant]
     Active Substance: ALPRAZOLAM
  4. ASCORBIC ACID [Concomitant]
     Active Substance: ASCORBIC ACID
  5. ASPIRIN [Concomitant]
     Active Substance: ASPIRIN
  6. FINASTERIDE [Concomitant]
     Active Substance: FINASTERIDE
  7. FLOMAX [Concomitant]
     Active Substance: TAMSULOSIN HYDROCHLORIDE
  8. LATANOPROST [Concomitant]
     Active Substance: LATANOPROST
     Route: 047
  9. LEVOBUNOLOL [Concomitant]
     Active Substance: LEVOBUNOLOL
     Route: 047
  10. METOPROLOL TARTRATE [Concomitant]
     Active Substance: METOPROLOL TARTRATE
  11. SIMVASTATIN [Concomitant]
     Active Substance: SIMVASTATIN
     Route: 048
  12. VITAMIN D [Concomitant]
     Active Substance: VITAMIN D NOS
  13. TRIAMCINOLONE ACETONIDE [Concomitant]
     Active Substance: TRIAMCINOLONE ACETONIDE

REACTIONS (4)
  - Cold sweat [Unknown]
  - Rash [Unknown]
  - Hyperhidrosis [Unknown]
  - Hot flush [Unknown]
